FAERS Safety Report 9225303 (Version 2)
Quarter: 2013Q3

REPORT INFORMATION
  Report Type: Spontaneous
  Country: DE (occurrence: DK)
  Receive Date: 20130411
  Receipt Date: 20130911
  Transmission Date: 20140515
  Serious: Yes (Disabling)
  Sender: FDA-Public Use
  Company Number: DK-FRI-1000044185

PATIENT
  Age: 85 Year
  Sex: Male
  Weight: 69 kg

DRUGS (11)
  1. MEMANTINE [Suspect]
     Indication: DEMENTIA ALZHEIMER^S TYPE
     Dosage: 10 MG
     Route: 048
     Dates: start: 20121102
  2. MEMANTINE [Suspect]
     Indication: DEMENTIA ALZHEIMER^S TYPE
     Dosage: 20 MG
     Route: 048
     Dates: start: 201212
  3. MEMANTINE [Suspect]
     Dosage: 10 MG
     Dates: start: 20130110, end: 20130207
  4. MEMANTINE [Suspect]
     Indication: DEMENTIA ALZHEIMER^S TYPE
     Dosage: 5 MG
     Route: 048
     Dates: start: 20130320
  5. FURIX [Concomitant]
     Indication: HYPERTENSION
     Dosage: 40 MG
     Dates: end: 20121031
  6. KALEORID [Concomitant]
     Dosage: 750 MG
     Dates: end: 20121031
  7. PERSANTIN RETARD [Concomitant]
     Indication: THROMBOSIS PROPHYLAXIS
     Dates: start: 2007, end: 20130320
  8. MAGNYL [Concomitant]
     Indication: THROMBOSIS PROPHYLAXIS
     Dates: start: 2007, end: 20130320
  9. CALCIUM + VITAMIN D3 [Concomitant]
     Indication: OSTEOPOROSIS PROPHYLAXIS
     Dosage: 400 MG/38 MCG
     Dates: start: 20130320
  10. AMLODIPINE [Concomitant]
     Indication: HYPERTENSION
     Dosage: 5 MG
  11. CLOPIDOGREL [Concomitant]
     Dosage: 75 MG

REACTIONS (2)
  - Blindness unilateral [Not Recovered/Not Resolved]
  - Retinal artery occlusion [Not Recovered/Not Resolved]
